FAERS Safety Report 9980978 (Version 1)
Quarter: 2014Q1

REPORT INFORMATION
  Report Type: Spontaneous
  Country: US (occurrence: None)
  Receive Date: 20140306
  Receipt Date: 20140306
  Transmission Date: 20141002
  Serious: Yes (Other)
  Sender: FDA-Public Use
  Company Number: None

PATIENT
  Age: 51 Year
  Sex: Female

DRUGS (1)
  1. HYDROXYCHLOROQUINE [Suspect]
     Indication: LYMPHADENITIS
     Dosage: 2 DOSES TWICE DAILY TAKEN BY MOUTH
     Route: 048
     Dates: start: 20140205, end: 20140218

REACTIONS (6)
  - Diarrhoea [None]
  - Abdominal pain upper [None]
  - Nausea [None]
  - Tinnitus [None]
  - Headache [None]
  - Gastric disorder [None]
